FAERS Safety Report 18657510 (Version 1)
Quarter: 2020Q4

REPORT INFORMATION
  Report Type: Spontaneous
  Country: DE (occurrence: DE)
  Receive Date: 20201224
  Receipt Date: 20201224
  Transmission Date: 20210114
  Serious: Yes (Other)
  Sender: FDA-Public Use
  Company Number: DE-ESPERIONTHERAPEUTICS-2020DEU05103

PATIENT
  Age: 60 Year
  Sex: Male

DRUGS (2)
  1. NUSTENDI [Suspect]
     Active Substance: BEMPEDOIC ACID\EZETIMIBE
     Indication: LOW DENSITY LIPOPROTEIN INCREASED
     Dosage: UNK
     Route: 065
     Dates: start: 20201208, end: 20201215
  2. VIAGRA [Interacting]
     Active Substance: SILDENAFIL CITRATE
     Indication: ERECTILE DYSFUNCTION
     Dosage: UNK
     Route: 065
     Dates: start: 20201212

REACTIONS (9)
  - Hypothermia [Recovered/Resolved]
  - Pruritus [Unknown]
  - Eye haemorrhage [Unknown]
  - Flatulence [Unknown]
  - Chills [Recovered/Resolved]
  - Abdominal discomfort [Unknown]
  - Treatment noncompliance [Unknown]
  - Hyperhidrosis [Recovered/Resolved]
  - Drug interaction [Unknown]

NARRATIVE: CASE EVENT DATE: 202012
